FAERS Safety Report 4334894-5 (Version None)
Quarter: 2004Q2

REPORT INFORMATION
  Report Type: 
  Country: None (occurrence: None)
  Receive Date: 20040405
  Receipt Date: 20040322
  Transmission Date: 20050107
  Serious: Yes (Other)
  Sender: FDA-Public Use
  Company Number: 2004205506CH

PATIENT
  Sex: Male
  Weight: 112 kg

DRUGS (5)
  1. BEXTRA [Suspect]
     Indication: BACK PAIN
     Dosage: 40 MG, QD, ORAL
     Route: 048
     Dates: start: 20040217, end: 20040218
  2. MARCOUMAR [Concomitant]
  3. ELTROXIN (LEVOTHYROXINE SODIUM) [Concomitant]
  4. BELOK ZOK (METOPROLOL SUCCINATE) [Concomitant]
  5. ZESTORETIC [Concomitant]

REACTIONS (3)
  - ANGIONEUROTIC OEDEMA [None]
  - PRURITUS [None]
  - URTICARIA [None]
